FAERS Safety Report 7692177-X (Version None)
Quarter: 2011Q3

REPORT INFORMATION
  Report Type: 
  Country: None (occurrence: None)
  Receive Date: 20110818
  Receipt Date: 20110816
  Transmission Date: 20111222
  Serious: Yes (Hospitalization)
  Sender: FDA-Public Use
  Company Number: PHHO2011BE13944

PATIENT
  Sex: Male
  Weight: 73 kg

DRUGS (1)
  1. AFINITOR [Suspect]
     Indication: NEUROENDOCRINE TUMOUR
     Dosage: 10 MG, UNK
     Dates: start: 20110715, end: 20110817

REACTIONS (1)
  - GENERAL PHYSICAL HEALTH DETERIORATION [None]
